FAERS Safety Report 23730892 (Version 1)
Quarter: 2024Q2

REPORT INFORMATION
  Report Type: Spontaneous
  Country: PL (occurrence: PL)
  Receive Date: 20240411
  Receipt Date: 20240411
  Transmission Date: 20240716
  Serious: Yes (Hospitalization, Other)
  Sender: FDA-Public Use
  Company Number: PL-BRISTOL-MYERS SQUIBB COMPANY-2024-047007

PATIENT
  Age: 77 Year
  Sex: Female
  Weight: 80 kg

DRUGS (4)
  1. APIXABAN [Suspect]
     Active Substance: APIXABAN
     Indication: Product used for unknown indication
     Dosage: UNK
     Route: 065
     Dates: start: 20220201, end: 20220718
  2. CLOPIDOGREL [Suspect]
     Active Substance: CLOPIDOGREL BISULFATE
     Indication: Product used for unknown indication
     Dosage: UNK
     Route: 065
     Dates: start: 20220201, end: 20230302
  3. ZILTIVEKIMAB [Suspect]
     Active Substance: ZILTIVEKIMAB
     Indication: Arteriosclerosis
     Dosage: 15 MILLIGRAM PER MILLILITRE
     Route: 065
     Dates: start: 20220622, end: 20220622
  4. ASPIRIN [Suspect]
     Active Substance: ASPIRIN
     Indication: Product used for unknown indication
     Dosage: UNK
     Route: 065
     Dates: start: 2018, end: 20220719

REACTIONS (5)
  - Circulatory collapse [Recovered/Resolved]
  - Iron deficiency anaemia [Recovered/Resolved with Sequelae]
  - Epistaxis [Recovered/Resolved]
  - Carotid artery stenosis [Not Recovered/Not Resolved]
  - Myocardial infarction [Recovered/Resolved]

NARRATIVE: CASE EVENT DATE: 20220201
